FAERS Safety Report 7588797 (Version 10)
Quarter: 2014Q1

REPORT INFORMATION
  Report Type: Spontaneous
  Country: US (occurrence: US)
  Receive Date: 20100916
  Receipt Date: 20140221
  Transmission Date: 20141002
  Serious: Yes (Death, Hospitalization)
  Sender: FDA-Public Use
  Company Number: US-JNJFOC-20100902861

PATIENT
  Age: 36 Year
  Sex: Female
  Weight: 64.41 kg

DRUGS (6)
  1. TYLENOL [Suspect]
     Route: 048
  2. TYLENOL [Suspect]
     Indication: PRODUCT USED FOR UNKNOWN INDICATION
     Route: 048
     Dates: start: 200810, end: 20081003
  3. TYLENOL PM [Suspect]
     Indication: INSOMNIA
     Route: 048
  4. ELAVIL [Concomitant]
  5. EFFEXOR [Concomitant]
  6. DOXYLAMINE [Concomitant]
     Indication: INSOMNIA

REACTIONS (4)
  - Acute hepatic failure [Fatal]
  - Renal failure acute [Fatal]
  - Toxicity to various agents [Fatal]
  - Coma hepatic [Unknown]
